FAERS Safety Report 5152707-9 (Version None)
Quarter: 2006Q4

REPORT INFORMATION
  Report Type: 
  Country: None (occurrence: None)
  Receive Date: 20061109
  Receipt Date: 20061101
  Transmission Date: 20070319
  Serious: Yes (Other)
  Sender: FDA-Public Use
  Company Number: S06-USA-04594-01

PATIENT
  Age: 54 Year
  Sex: Female

DRUGS (3)
  1. LEXAPRO [Suspect]
     Indication: ANXIETY
     Dosage: 20 MG QHS PO
     Route: 048
     Dates: start: 20061031
  2. LEXAPRO [Suspect]
     Indication: DEPRESSION
     Dosage: 20 MG QHS PO
     Route: 048
     Dates: start: 20061031
  3. INDERAL LA [Concomitant]

REACTIONS (3)
  - BLOOD PRESSURE INCREASED [None]
  - DIZZINESS [None]
  - LOSS OF CONSCIOUSNESS [None]
